FAERS Safety Report 5248040-7 (Version None)
Quarter: 2007Q1

REPORT INFORMATION
  Report Type: 
  Country: None (occurrence: None)
  Receive Date: 20070227
  Receipt Date: 20070208
  Transmission Date: 20070707
  Serious: Yes (Hospitalization)
  Sender: FDA-Public Use
  Company Number: US-SANOFI-SYNTHELABO-A03200701394

PATIENT

DRUGS (20)
  1. LORAZEPAM [Concomitant]
     Dosage: UNK
     Route: 065
  2. FLUOXETINE [Concomitant]
     Dosage: UNK
     Route: 065
  3. FAMOTIDINE [Concomitant]
     Dosage: UNK
     Route: 065
  4. LISINOPRIL [Concomitant]
     Dosage: UNK
     Route: 065
  5. ACETYLSALICYLIC ACID SRT [Concomitant]
     Dosage: UNK
     Route: 065
  6. LASIX [Concomitant]
     Dosage: UNK
     Route: 065
  7. COREG [Concomitant]
     Dosage: UNK
     Route: 065
  8. LIPITOR [Concomitant]
     Dosage: UNK
     Route: 065
  9. ZETIA [Concomitant]
     Dosage: UNK
     Route: 065
  10. IRON [Concomitant]
     Dosage: UNK
     Route: 065
  11. ROSIGLITAZONE MALEATE [Concomitant]
     Dosage: UNK
     Route: 065
  12. PROCHLORPERAZINE [Concomitant]
     Dosage: UNK
     Route: 065
  13. NEXIUM [Concomitant]
     Dosage: UNK
     Route: 065
  14. HYDRALAZINE HCL [Concomitant]
     Dosage: UNK
     Route: 065
  15. METOCLOPRAMIDE [Concomitant]
     Dosage: UNK
     Route: 065
  16. AMITRIPTYLINE HCL [Concomitant]
     Dosage: UNK
     Route: 065
  17. NEURONTIN [Concomitant]
     Dosage: UNK
     Route: 065
  18. OXYCONTIN [Concomitant]
     Dosage: UNK
     Route: 065
  19. PLAVIX [Suspect]
     Indication: DRUG USE FOR UNKNOWN INDICATION
     Dosage: UNK
     Route: 048
  20. ABCIXIMAB [STUDY DRUG] [Concomitant]
     Dosage: UNK
     Route: 065

REACTIONS (4)
  - ARTERIAL OCCLUSIVE DISEASE [None]
  - ARTERIAL THROMBOSIS LIMB [None]
  - OPERATIVE HAEMORRHAGE [None]
  - SKIN ULCER [None]
